FAERS Safety Report 10501092 (Version 1)
Quarter: 2014Q4

REPORT INFORMATION
  Report Type: Spontaneous
  Country: US (occurrence: None)
  Receive Date: 20141006
  Receipt Date: 20141006
  Transmission Date: 20150528
  Serious: Yes (Life-Threatening, Hospitalization, Disabling)
  Sender: FDA-Public Use
  Company Number: None

PATIENT
  Age: 52 Year
  Sex: Male
  Weight: 90.45 kg

DRUGS (1)
  1. RIZATRIPTAN [Suspect]
     Active Substance: RIZATRIPTAN
     Indication: MIGRAINE
     Dosage: MG, PO
     Route: 048
     Dates: start: 20100907, end: 20140730

REACTIONS (3)
  - Colitis ischaemic [None]
  - Colon gangrene [None]
  - Gastrointestinal necrosis [None]

NARRATIVE: CASE EVENT DATE: 20140604
